FAERS Safety Report 17955634 (Version 2)
Quarter: 2020Q2

REPORT INFORMATION
  Report Type: Report from Study
  Country: US (occurrence: US)
  Receive Date: 20200629
  Receipt Date: 20200630
  Transmission Date: 20200714
  Serious: Yes (Hospitalization)
  Sender: FDA-Public Use
  Company Number: US-ROCHE-2630437

PATIENT
  Sex: Male
  Weight: 59.9 kg

DRUGS (15)
  1. INSULIN GLARGINE [Concomitant]
     Active Substance: INSULIN GLARGINE
     Dosage: INJECT 10 UNITS DAILY AT BED TIME
     Route: 058
  2. ACTEMRA [Suspect]
     Active Substance: TOCILIZUMAB
     Indication: TEMPORAL ARTERITIS
     Dosage: INJECT 162MG SUBCUTANEOUSLY EVERY WEEK
     Route: 058
  3. BIOTIN [Concomitant]
     Active Substance: BIOTIN
     Route: 048
  4. PREDNISONE. [Concomitant]
     Active Substance: PREDNISONE
     Route: 065
  5. ASPIRIN [ACETYLSALICYLIC ACID] [Concomitant]
     Active Substance: ASPIRIN
     Route: 048
  6. PANTOPRAZOLE [Concomitant]
     Active Substance: PANTOPRAZOLE
     Route: 048
  7. LISINOPRIL. [Concomitant]
     Active Substance: LISINOPRIL
     Route: 048
  8. LINAGLIPTIN [Concomitant]
     Active Substance: LINAGLIPTIN
     Route: 048
  9. UBIDECARENONE [Concomitant]
     Active Substance: UBIDECARENONE
     Route: 048
  10. SULFAMETHOXAZOLE/TRIMETHOPRIM [Concomitant]
     Active Substance: SULFAMETHOXAZOLE\TRIMETHOPRIM
     Dosage: 800-160 MG; TAKE 1 TABLET EVERY MONDAY, WEDNESDAY AND FRIDAY
     Route: 065
  11. ERYTHROMYCIN. [Concomitant]
     Active Substance: ERYTHROMYCIN
     Dosage: APPLY 1/2 INCH RIBBON PER APPLICATION TO RIGHT INCISION FOR 1 WEEK, THEN TWICE A DAY FOR 1 WEEK
     Route: 065
  12. GLIMEPIRIDE. [Concomitant]
     Active Substance: GLIMEPIRIDE
     Route: 065
  13. CHOLECALCIFEROL [Concomitant]
     Active Substance: CHOLECALCIFEROL
     Dosage: 2 TABLETS
     Route: 048
  14. BACITRACIN. [Concomitant]
     Active Substance: BACITRACIN
     Dosage: APPLY 1/2 INCH RIBBON PER APPLICATION TO RIGHT INCISION FOR 1 WEEK
     Route: 065
  15. PERFLUTREN [Concomitant]
     Active Substance: PERFLUTREN

REACTIONS (1)
  - Rectal haemorrhage [Unknown]
